APPROVED DRUG PRODUCT: VIMPAT
Active Ingredient: LACOSAMIDE
Strength: 150MG
Dosage Form/Route: TABLET;ORAL
Application: N022253 | Product #003 | TE Code: AB
Applicant: UCB INC
Approved: Oct 28, 2008 | RLD: Yes | RS: No | Type: RX

EXCLUSIVITY:
Code: D-188 | Date: Apr 28, 2026